FAERS Safety Report 9831513 (Version 2)
Quarter: 2014Q1

REPORT INFORMATION
  Report Type: Spontaneous
  Country: US (occurrence: US)
  Receive Date: 20140121
  Receipt Date: 20140305
  Transmission Date: 20141002
  Serious: No
  Sender: FDA-Public Use
  Company Number: US-B.I. PHARMACEUTICALS,INC./RIDGEFIELD-2014-BI-01568BP

PATIENT
  Age: 83 Year
  Sex: Female
  Weight: 61 kg

DRUGS (15)
  1. SPIRIVA [Suspect]
     Indication: BRONCHITIS CHRONIC
     Dosage: 18 MCG
     Route: 055
     Dates: start: 201303
  2. SYMBICORT [Concomitant]
     Indication: BRONCHITIS CHRONIC
     Dosage: (INHALATION AEROSOL)
     Route: 055
  3. LEVOTHYROXINE [Concomitant]
     Indication: HYPOTHYROIDISM
     Dosage: 50 MCG
     Route: 048
  4. RESTASIS EYE DROPS [Concomitant]
     Indication: DRY EYE
     Dosage: EYE DROPS
  5. EYE CAP [Concomitant]
     Route: 048
  6. METOPROLOL [Concomitant]
     Indication: ATRIAL FIBRILLATION
     Dosage: 100 MG
     Route: 048
  7. VITAMIN D [Concomitant]
     Dosage: 1000 U
     Route: 048
  8. CITROCAL [Concomitant]
     Route: 048
  9. DILTIAZEM [Concomitant]
     Indication: ATRIAL FIBRILLATION
     Dosage: 120 MG
     Route: 048
  10. CENTRUM SILVER [Concomitant]
     Route: 048
  11. PRADAXA [Concomitant]
     Indication: ATRIAL FIBRILLATION
     Dosage: 300 MG
     Route: 048
  12. GLUCOSAMINE CHONDROITEN [Concomitant]
     Route: 048
  13. ATORVASTATIN [Concomitant]
     Indication: BLOOD CHOLESTEROL INCREASED
     Dosage: 10 MG
     Route: 048
  14. ACTONEL [Concomitant]
     Indication: OSTEOPOROSIS
     Route: 048
  15. PREMARIN CREAM [Concomitant]
     Route: 061

REACTIONS (4)
  - Cough [Not Recovered/Not Resolved]
  - Dysphonia [Not Recovered/Not Resolved]
  - Product quality issue [Recovered/Resolved]
  - Product quality issue [Recovered/Resolved]
